FAERS Safety Report 7356517-3 (Version None)
Quarter: 2011Q1

REPORT INFORMATION
  Report Type: 
  Country: None (occurrence: None)
  Receive Date: 20110316
  Receipt Date: 20110302
  Transmission Date: 20110831
  Serious: Yes (Other)
  Sender: FDA-Public Use
  Company Number: PHHY2010CA89686

PATIENT
  Sex: Male

DRUGS (4)
  1. INSULIN [Concomitant]
  2. APO-MINOCYCLINE [Concomitant]
  3. SANDOSTATIN LAR [Suspect]
     Indication: PANCREATIC NEUROENDOCRINE TUMOUR
     Dosage: 30 MG, EVERY 4 WEEKS
     Route: 030
     Dates: start: 20100920
  4. METFORMIN HCL [Concomitant]

REACTIONS (6)
  - FURUNCLE [None]
  - FATIGUE [None]
  - DEPRESSED MOOD [None]
  - DIARRHOEA [None]
  - HEADACHE [None]
  - ASTHENIA [None]
